FAERS Safety Report 18290570 (Version 2)
Quarter: 2020Q3

REPORT INFORMATION
  Report Type: Spontaneous
  Country: BE (occurrence: BE)
  Receive Date: 20200921
  Receipt Date: 20200922
  Transmission Date: 20201103
  Serious: Yes (Life-Threatening)
  Sender: FDA-Public Use
  Company Number: BE-JNJFOC-20200916587

PATIENT
  Age: 68 Year
  Sex: Male

DRUGS (8)
  1. VELCADE [Concomitant]
     Active Substance: BORTEZOMIB
     Indication: PLASMA CELL MYELOMA
     Route: 058
     Dates: start: 20200717
  2. DARZALEX [Suspect]
     Active Substance: DARATUMUMAB
     Indication: CHEMOTHERAPY
  3. LYRICA [Concomitant]
     Active Substance: PREGABALIN
     Dosage: 2X/J
  4. SOLIFENACIN SUCCINATE W/TAMSULOSIN HYDROCHLOR [Concomitant]
     Dates: start: 20200717
  5. DARZALEX [Suspect]
     Active Substance: DARATUMUMAB
     Indication: CHEMOTHERAPY
     Dosage: 1.216MG IV (THE PATIENT DIDN^T RECEIVE FULL DOSE DUE TO POSSIBLE ADVERSE REACTION)
     Route: 042
     Dates: start: 20200717
  6. ZOLPIDEM [Concomitant]
     Active Substance: ZOLPIDEM TARTRATE
  7. TRAZOLAN [Concomitant]
     Active Substance: TRAZODONE HYDROCHLORIDE
     Dosage: 1X/J
  8. NOBITEN                            /01339101/ [Concomitant]
     Active Substance: NEBIVOLOL
     Dosage: 1X/J

REACTIONS (7)
  - Allodynia [Recovering/Resolving]
  - Agitation [Recovering/Resolving]
  - Tachypnoea [Recovering/Resolving]
  - Hyperaesthesia [Recovering/Resolving]
  - Infusion related reaction [Recovering/Resolving]
  - Restlessness [Recovering/Resolving]
  - Altered state of consciousness [Recovering/Resolving]

NARRATIVE: CASE EVENT DATE: 20200717
